FAERS Safety Report 19372345 (Version 2)
Quarter: 2021Q3

REPORT INFORMATION
  Report Type: Spontaneous
  Country: GB (occurrence: GB)
  Receive Date: 20210604
  Receipt Date: 20210707
  Transmission Date: 20211014
  Serious: Yes (Other)
  Sender: FDA-Public Use
  Company Number: GB-TEVA-2021-GB-1917889

PATIENT
  Age: 54 Year
  Sex: Female

DRUGS (4)
  1. BECLOMETHASONE [Suspect]
     Active Substance: BECLOMETHASONE
     Indication: PRODUCT USED FOR UNKNOWN INDICATION
     Route: 065
  2. CLENIL MODULITE [Concomitant]
     Active Substance: BECLOMETHASONE DIPROPIONATE
     Indication: ASTHMA
  3. DEXAMETHASONE. [Concomitant]
     Active Substance: DEXAMETHASONE
     Indication: ECZEMA EYELIDS
  4. BETNOVATE [Concomitant]
     Active Substance: BETAMETHASONE
     Indication: DERMATITIS ATOPIC

REACTIONS (9)
  - Rash pruritic [Recovering/Resolving]
  - Headache [Not Recovered/Not Resolved]
  - Rash [Recovering/Resolving]
  - Dermatitis allergic [Recovered/Resolved]
  - Skin warm [Unknown]
  - Eczema [Recovered/Resolved]
  - Fatigue [Recovered/Resolved]
  - Procedural nausea [Recovering/Resolving]
  - Fatigue [Recovering/Resolving]

NARRATIVE: CASE EVENT DATE: 20210505
